FAERS Safety Report 4729661-4 (Version None)
Quarter: 2005Q3

REPORT INFORMATION
  Report Type: 
  Country: None (occurrence: None)
  Receive Date: 20050801
  Receipt Date: 20030605
  Transmission Date: 20060218
  Serious: Yes (Hospitalization, Other)
  Sender: FDA-Public Use
  Company Number: US-MERCK-0306USA00622

PATIENT
  Age: 62 Year
  Sex: Male
  Weight: 93 kg

DRUGS (6)
  1. VIOXX [Suspect]
     Indication: BACK PAIN
     Route: 048
     Dates: start: 20001206, end: 20010601
  2. ZESTRIL [Suspect]
     Route: 065
  3. ISOSORBIDE [Concomitant]
     Route: 065
  4. CARDURA [Concomitant]
     Route: 065
  5. ZOCOR [Concomitant]
     Route: 048
  6. ASPIRIN [Concomitant]
     Route: 065

REACTIONS (48)
  - ABDOMINAL PAIN LOWER [None]
  - ACTINIC KERATOSIS [None]
  - ALOPECIA [None]
  - ANAEMIA [None]
  - ANGINA PECTORIS [None]
  - ASTHENIA [None]
  - ATRIAL FIBRILLATION [None]
  - ATRIAL FLUTTER [None]
  - BLOOD PRESSURE INCREASED [None]
  - BRADYCARDIA [None]
  - CHEST PAIN [None]
  - COCCYDYNIA [None]
  - COLON ADENOMA [None]
  - COLONIC POLYP [None]
  - CONVULSION [None]
  - CORONARY ARTERY DISEASE [None]
  - CORONARY ARTERY INSUFFICIENCY [None]
  - DIZZINESS [None]
  - DRUG INEFFECTIVE [None]
  - DUODENAL ULCER [None]
  - DYSPNOEA [None]
  - DYSPNOEA EXERTIONAL [None]
  - ECZEMA [None]
  - GASTRITIS [None]
  - GASTROINTESTINAL ARTERIOVENOUS MALFORMATION [None]
  - HYPERHIDROSIS [None]
  - HYPOTENSION [None]
  - INTERNATIONAL NORMALISED RATIO INCREASED [None]
  - JOINT SPRAIN [None]
  - MYOCARDIAL INFARCTION [None]
  - MYOCARDIAL ISCHAEMIA [None]
  - NASAL CONGESTION [None]
  - NASAL POLYPS [None]
  - NECK PAIN [None]
  - OEDEMA PERIPHERAL [None]
  - OSTEOARTHRITIS [None]
  - POSTNASAL DRIP [None]
  - PROTHROMBIN TIME PROLONGED [None]
  - PULMONARY CONGESTION [None]
  - REFLUX OESOPHAGITIS [None]
  - RHINITIS [None]
  - RHINITIS ALLERGIC [None]
  - RHINORRHOEA [None]
  - SINUSITIS [None]
  - SKIN EXFOLIATION [None]
  - SKIN LESION [None]
  - SLEEP DISORDER [None]
  - WEIGHT DECREASED [None]
